FAERS Safety Report 10648315 (Version 1)
Quarter: 2014Q4

REPORT INFORMATION
  Report Type: Spontaneous
  Country: US (occurrence: None)
  Receive Date: 20141203
  Receipt Date: 20141203
  Transmission Date: 20150529
  Serious: Yes (Other)
  Sender: FDA-Public Use
  Company Number: 1433332

PATIENT
  Age: 51 Year
  Sex: Female

DRUGS (4)
  1. ADRIAMYCIN (DOXORUBICIN) [Concomitant]
  2. TAXOL [Concomitant]
     Active Substance: PACLITAXEL
  3. HERCEPTIN [Suspect]
     Active Substance: TRASTUZUMAB
     Indication: HER-2 POSITIVE BREAST CANCER
  4. CYCLOPHOSPHAMIDE (CYCLOPHOSPHAMIDE) [Concomitant]
     Active Substance: CYCLOPHOSPHAMIDE

REACTIONS (2)
  - Cardiac failure congestive [None]
  - Ejection fraction decreased [None]
